FAERS Safety Report 17199169 (Version 5)
Quarter: 2020Q1

REPORT INFORMATION
  Report Type: Spontaneous
  Country: US (occurrence: US)
  Receive Date: 20191225
  Receipt Date: 20200121
  Transmission Date: 20200409
  Serious: No
  Sender: FDA-Public Use
  Company Number: US-009507513-1912USA010723

PATIENT
  Age: 17 Year
  Sex: Female
  Weight: 57.14 kg

DRUGS (1)
  1. NEXPLANON [Suspect]
     Active Substance: ETONOGESTREL
     Dosage: 1 IMPLANT, EVERY 3 YEARS
     Route: 059
     Dates: start: 20191219, end: 20191219

REACTIONS (3)
  - Complication of device insertion [Not Recovered/Not Resolved]
  - Product quality issue [Unknown]
  - Device difficult to use [Not Recovered/Not Resolved]

NARRATIVE: CASE EVENT DATE: 20191219
